FAERS Safety Report 5490369-1 (Version None)
Quarter: 2007Q4

REPORT INFORMATION
  Report Type: 
  Country: None (occurrence: None)
  Receive Date: 20071015
  Receipt Date: 20061221
  Transmission Date: 20080405
  Serious: Yes (Other)
  Sender: FDA-Public Use
  Company Number: 33218

PATIENT
  Age: 30 Year
  Sex: Female

DRUGS (1)
  1. LEUPROLIDE ACETATE [Suspect]
     Indication: INFERTILITY
     Dosage: INJECTION

REACTIONS (1)
  - INJECTION SITE REACTION [None]
